FAERS Safety Report 7291586-0 (Version None)
Quarter: 2011Q1

REPORT INFORMATION
  Report Type: 
  Country: None (occurrence: None)
  Receive Date: 20110214
  Receipt Date: 20110210
  Transmission Date: 20110831
  Serious: Yes (Death, Other)
  Sender: FDA-Public Use
  Company Number: PHHY2011ZA11250

PATIENT
  Sex: Male

DRUGS (1)
  1. SANDOSTATIN LAR [Suspect]
     Indication: CARCINOID TUMOUR
     Dosage: 20 MG, UNK
     Route: 030

REACTIONS (5)
  - HYPERTENSION [None]
  - DEATH [None]
  - OEDEMA PERIPHERAL [None]
  - HYPOTENSION [None]
  - RASH [None]
